FAERS Safety Report 15726039 (Version 1)
Quarter: 2018Q4

REPORT INFORMATION
  Report Type: Spontaneous
  Country: US (occurrence: US)
  Receive Date: 20181216
  Receipt Date: 20181216
  Transmission Date: 20190205
  Serious: No
  Sender: FDA-Public Use
  Company Number: US-SUPERNUS PHARMACEUTICALS, INC.-2017SUP00324

PATIENT
  Sex: Male
  Weight: 124.72 kg

DRUGS (5)
  1. TROKENDI XR [Suspect]
     Active Substance: TOPIRAMATE
     Indication: EPILEPSY
     Dosage: 50 MG, 1X/DAY
     Route: 048
     Dates: start: 2017, end: 2017
  2. TROKENDI XR [Suspect]
     Active Substance: TOPIRAMATE
     Indication: EPILEPSY
     Dosage: 25 MG, 1X/DAY
     Route: 048
     Dates: start: 2017, end: 2017
  3. FYCOMPA [Concomitant]
     Active Substance: PERAMPANEL
     Dosage: 6 MG, 1X/DAY
  4. FYCOMPA [Concomitant]
     Active Substance: PERAMPANEL
     Dosage: 4 MG, 1X/DAY
  5. TROKENDI XR [Suspect]
     Active Substance: TOPIRAMATE
     Indication: EPILEPSY
     Dosage: 100 MG, 1X/DAY
     Route: 048
     Dates: start: 2017

REACTIONS (3)
  - Insomnia [Recovering/Resolving]
  - Tinnitus [Not Recovered/Not Resolved]
  - Memory impairment [Not Recovered/Not Resolved]

NARRATIVE: CASE EVENT DATE: 2017
